FAERS Safety Report 6757080-8 (Version None)
Quarter: 2010Q2

REPORT INFORMATION
  Report Type: 
  Country: None (occurrence: None)
  Receive Date: 20100604
  Receipt Date: 20100528
  Transmission Date: 20101027
  Serious: Yes (Other)
  Sender: FDA-Public Use
  Company Number: US-MERCK-1005USA01567

PATIENT
  Age: 21 Year
  Sex: Female

DRUGS (4)
  1. ISENTRESS [Suspect]
     Route: 048
     Dates: start: 20100322
  2. PREZISTA [Suspect]
     Route: 048
     Dates: start: 20100322
  3. NORVIR [Suspect]
     Route: 048
     Dates: start: 20100322
  4. TRUVADA [Suspect]
     Route: 048
     Dates: start: 20100322

REACTIONS (3)
  - DRUG EXPOSURE DURING PREGNANCY [None]
  - PREMATURE LABOUR [None]
  - PREMATURE RUPTURE OF MEMBRANES [None]
